FAERS Safety Report 9166432 (Version 1)
Quarter: 2013Q1

REPORT INFORMATION
  Report Type: Spontaneous
  Country: US (occurrence: US)
  Receive Date: 20130315
  Receipt Date: 20130315
  Transmission Date: 20140127
  Serious: No
  Sender: FDA-Public Use
  Company Number: US-009507513-1303USA006875

PATIENT
  Age: 23 Year
  Sex: Male
  Weight: 160.1 kg

DRUGS (1)
  1. CLARITIN [Suspect]
     Indication: SEASONAL ALLERGY
     Dosage: 20 MG, UNK
     Route: 048
     Dates: start: 20130312

REACTIONS (1)
  - Overdose [Unknown]
